FAERS Safety Report 11322740 (Version 1)
Quarter: 2015Q3

REPORT INFORMATION
  Report Type: Spontaneous
  Country: US (occurrence: US)
  Receive Date: 20150730
  Receipt Date: 20150730
  Transmission Date: 20151125
  Serious: No
  Sender: FDA-Public Use
  Company Number: US-009507513-1507USA012066

PATIENT
  Age: 31 Year
  Sex: Female
  Weight: 67.57 kg

DRUGS (1)
  1. NUVARING [Suspect]
     Active Substance: ETHINYL ESTRADIOL\ETONOGESTREL
     Indication: CONTRACEPTION
     Dosage: 1 RING; 3 WEEKS IN 1 WEEK OUT
     Route: 067
     Dates: start: 201408

REACTIONS (1)
  - Withdrawal bleed [Unknown]

NARRATIVE: CASE EVENT DATE: 20150724
